FAERS Safety Report 12084718 (Version 1)
Quarter: 2016Q1

REPORT INFORMATION
  Report Type: Spontaneous
  Country: US (occurrence: US)
  Receive Date: 20160217
  Receipt Date: 20160217
  Transmission Date: 20160526
  Serious: No
  Sender: FDA-Public Use
  Company Number: US-BAYER-2016-031191

PATIENT
  Age: 70 Year
  Sex: Female
  Weight: 65.76 kg

DRUGS (1)
  1. ALEVE PM [Suspect]
     Active Substance: DIPHENHYDRAMINE HYDROCHLORIDE\NAPROXEN SODIUM
     Indication: SLEEP DISORDER THERAPY
     Dosage: 2 DF, PRN
     Route: 048
     Dates: start: 201602, end: 20160212

REACTIONS (3)
  - Product use issue [None]
  - Drug ineffective [None]
  - Somnolence [None]

NARRATIVE: CASE EVENT DATE: 201602
